FAERS Safety Report 10385859 (Version 1)
Quarter: 2014Q3

REPORT INFORMATION
  Report Type: Report from Study
  Country: US (occurrence: US)
  Receive Date: 20140814
  Receipt Date: 20140814
  Transmission Date: 20150326
  Serious: Yes (Hospitalization, Other)
  Sender: FDA-Public Use
  Company Number: US-ACTELION-A-US2014-103258

PATIENT
  Age: 60 Year
  Sex: Female

DRUGS (13)
  1. DAILY-VITE [Concomitant]
     Dosage: UNK, QD
  2. ASPIRIN. [Concomitant]
     Active Substance: ASPIRIN
     Dosage: 81 MG, QD
  3. OPSUMIT [Suspect]
     Active Substance: MACITENTAN
     Indication: PULMONARY ARTERIAL HYPERTENSION
     Dosage: UNK
     Route: 048
     Dates: start: 20140716
  4. ULTRAM [Concomitant]
     Active Substance: TRAMADOL HYDROCHLORIDE
     Dosage: 50 MG, Q12HRS PRN
  5. LASIX [Concomitant]
     Active Substance: FUROSEMIDE
     Dosage: 40 MG, QD
  6. XIFAXAN [Concomitant]
     Active Substance: RIFAXIMIN
     Dosage: 550 MG, BID BEFORE MEALS
  7. CEPHULAC [Concomitant]
     Active Substance: LACTULOSE
     Dosage: 5 UNK, UNK
  8. DELTASONE [Concomitant]
     Active Substance: PREDNISONE
     Dosage: 5 MG, QD
  9. PROAMATINE [Concomitant]
     Active Substance: MIDODRINE HYDROCHLORIDE
     Dosage: 20 MG, BEFORE DIALYSIS
  10. TRACLEER [Suspect]
     Active Substance: BOSENTAN\BOSENTAN MONOHYDRATE
     Indication: PULMONARY ARTERIAL HYPERTENSION
     Dosage: UNK
     Route: 048
     Dates: end: 20140716
  11. REMODULIN [Concomitant]
     Active Substance: TREPROSTINIL
     Dosage: 34 NG/KG, PER MIN
  12. NEXIUM [Concomitant]
     Active Substance: ESOMEPRAZOLE MAGNESIUM
     Dosage: 40 MG, QD
  13. PROAMATINE [Concomitant]
     Active Substance: MIDODRINE HYDROCHLORIDE
     Dosage: 10 MG, QD

REACTIONS (12)
  - Condition aggravated [Unknown]
  - Dialysis [Unknown]
  - Hypotension [Recovered/Resolved]
  - Hepatic failure [Recovered/Resolved]
  - Fluid overload [Unknown]
  - Hepatic cirrhosis [Unknown]
  - Pulmonary arterial hypertension [Unknown]
  - Renal failure chronic [Unknown]
  - Blood alkaline phosphatase increased [Recovering/Resolving]
  - Ascites [Unknown]
  - Chest pain [Unknown]
  - Cardiac failure congestive [Unknown]

NARRATIVE: CASE EVENT DATE: 20140701
